FAERS Safety Report 7556982-2 (Version None)
Quarter: 2011Q2

REPORT INFORMATION
  Report Type: 
  Country: None (occurrence: None)
  Receive Date: 20110620
  Receipt Date: 20110607
  Transmission Date: 20111010
  Serious: Yes (Hospitalization)
  Sender: FDA-Public Use
  Company Number: PHFR2011GB03563

PATIENT
  Age: 33 Year
  Sex: Female

DRUGS (5)
  1. MYCOPHENOLATE MOFETIL [Concomitant]
     Indication: TRANSPLANT REJECTION
  2. ENALAPRIL MALEATE [Concomitant]
     Indication: HYPERTENSION
     Dosage: 5 MG/DAY
     Route: 048
     Dates: start: 20020421
  3. PREDNISOLONE [Concomitant]
     Indication: IGA NEPHROPATHY
     Dosage: 10 MG/DAY
     Route: 048
     Dates: start: 20020421
  4. CYCLOSPORINE [Suspect]
     Indication: PROPHYLAXIS AGAINST TRANSPLANT REJECTION
     Dosage: 100 MG/DAILY
     Dates: start: 20020421, end: 20020606
  5. PROPRANOLOL [Concomitant]

REACTIONS (1)
  - ARTERIAL THROMBOSIS [None]
